APPROVED DRUG PRODUCT: BUPROPION HYDROCHLORIDE
Active Ingredient: BUPROPION HYDROCHLORIDE
Strength: 150MG
Dosage Form/Route: TABLET, EXTENDED RELEASE;ORAL
Application: A201331 | Product #002
Applicant: WOCKHARDT LTD
Approved: Aug 30, 2012 | RLD: No | RS: No | Type: DISCN